FAERS Safety Report 7409269-2 (Version None)
Quarter: 2011Q2

REPORT INFORMATION
  Report Type: 
  Country: None (occurrence: None)
  Receive Date: 20110412
  Receipt Date: 20110406
  Transmission Date: 20111010
  Serious: Yes (Other)
  Sender: FDA-Public Use
  Company Number: A0921656A

PATIENT
  Age: 45 Year
  Sex: Male

DRUGS (15)
  1. ZYRTEC [Concomitant]
  2. LEXAPRO [Concomitant]
  3. MOBIC [Concomitant]
  4. TRUVADA [Concomitant]
  5. LISINOPRIL [Concomitant]
  6. ZITHROMAX [Suspect]
     Route: 048
  7. DICLOFENAC POTASSIUM [Concomitant]
  8. FLOVENT [Suspect]
     Indication: EMPHYSEMA
     Dosage: 2PUFF TWICE PER DAY
     Route: 055
     Dates: start: 20090101
  9. PREZISTA [Concomitant]
  10. PROTONIX [Concomitant]
  11. ALBUTEROL [Concomitant]
  12. TESTOSTERONE INJECTION [Concomitant]
  13. VALTREX [Concomitant]
  14. NORVIR [Concomitant]
  15. LIPITOR [Concomitant]

REACTIONS (6)
  - RESPIRATORY TRACT INFECTION [None]
  - FUNGAL INFECTION [None]
  - THROAT IRRITATION [None]
  - OESOPHAGEAL CANDIDIASIS [None]
  - BRONCHITIS [None]
  - COUGH [None]
